FAERS Safety Report 9409000 (Version 1)
Quarter: 2013Q3

REPORT INFORMATION
  Report Type: Spontaneous
  Country: BE (occurrence: BE)
  Receive Date: 20130719
  Receipt Date: 20130719
  Transmission Date: 20140515
  Serious: Yes (Hospitalization)
  Sender: FDA-Public Use
  Company Number: BE-ROCHE-1249988

PATIENT
  Age: 14 Year
  Sex: Female

DRUGS (1)
  1. VALIUM [Suspect]
     Indication: PRODUCT USED FOR UNKNOWN INDICATION
     Dosage: AN HALF TABLET
     Route: 048

REACTIONS (4)
  - Hypotonia [Unknown]
  - Somnolence [Unknown]
  - Myoclonus [Unknown]
  - Salivary hypersecretion [Unknown]
